FAERS Safety Report 5106799-3 (Version None)
Quarter: 2006Q3

REPORT INFORMATION
  Report Type: 
  Country: None (occurrence: None)
  Receive Date: 20060918
  Receipt Date: 20050422
  Transmission Date: 20061208
  Serious: Yes (Hospitalization)
  Sender: FDA-Public Use
  Company Number: DE-PURDUE-DEU_2005_0001385

PATIENT
  Age: 56 Year
  Sex: Male
  Weight: 107 kg

DRUGS (10)
  1. OXY/NALOXONE VS OXY/PLACEBO CR TAB [Suspect]
     Indication: BACK PAIN
     Dosage: 20 MG, BID
     Route: 048
     Dates: start: 20050214, end: 20050421
  2. TORSEMIDE [Concomitant]
  3. RAMIPRIL [Concomitant]
  4. BISOPROLOL FUMARATE [Concomitant]
  5. SIMVASTATIN [Concomitant]
  6. TIMO-COMOD [Concomitant]
  7. CITALOPRAM HYDROBROMIDE [Concomitant]
  8. DOLO POSTERINE [Concomitant]
  9. SULPIRIDE [Concomitant]
  10. POSTERISAN FORTE [Concomitant]

REACTIONS (6)
  - ABDOMINAL PAIN [None]
  - BILIARY COLIC [None]
  - DIARRHOEA [None]
  - GASTROENTERITIS [None]
  - NAUSEA [None]
  - VOMITING [None]
